FAERS Safety Report 14914281 (Version 1)
Quarter: 2018Q2

REPORT INFORMATION
  Report Type: Spontaneous
  Country: US (occurrence: US)
  Receive Date: 20180501
  Receipt Date: 20180501
  Transmission Date: 20180711
  Serious: Yes (Life-Threatening)
  Sender: FDA-Public Use
  Company Number: None

PATIENT
  Sex: Male
  Weight: 60.75 kg

DRUGS (6)
  1. VIAGRA [Concomitant]
     Active Substance: SILDENAFIL CITRATE
  2. GABAPENTIN 300MG [Concomitant]
     Active Substance: GABAPENTIN
  3. FLUOXETINE [Concomitant]
     Active Substance: FLUOXETINE HYDROCHLORIDE
  4. BACLOFEN 10MG [Concomitant]
     Active Substance: BACLOFEN
  5. LEMTRADA [Suspect]
     Active Substance: ALEMTUZUMAB
     Indication: MULTIPLE SCLEROSIS
     Dates: start: 20160829, end: 20160902
  6. ACYCLOVIR 400MG [Concomitant]

REACTIONS (14)
  - Cough [None]
  - Blood lactate dehydrogenase increased [None]
  - Dyspnoea [None]
  - Chest pain [None]
  - Pyrexia [None]
  - Lethargy [None]
  - Headache [None]
  - Procalcitonin increased [None]
  - Breath sounds abnormal [None]
  - Pharyngeal erythema [None]
  - Pain [None]
  - Musculoskeletal stiffness [None]
  - Pneumocystis jirovecii pneumonia [None]
  - Viral upper respiratory tract infection [None]
